FAERS Safety Report 9289390 (Version 1)
Quarter: 2013Q2

REPORT INFORMATION
  Report Type: Spontaneous
  Country: US (occurrence: US)
  Receive Date: 20130514
  Receipt Date: 20130514
  Transmission Date: 20140414
  Serious: No
  Sender: FDA-Public Use
  Company Number: US-009507513-1305USA000338

PATIENT
  Sex: Female
  Weight: 63.49 kg

DRUGS (2)
  1. MIRALAX [Suspect]
     Indication: INTESTINAL OBSTRUCTION
     Dosage: 17 G, QD
     Route: 048
     Dates: start: 201206
  2. MIRALAX [Suspect]
     Indication: CONSTIPATION

REACTIONS (2)
  - Incorrect drug administration duration [Unknown]
  - Product deposit [Unknown]
